FAERS Safety Report 7819927-3 (Version None)
Quarter: 2011Q4

REPORT INFORMATION
  Report Type: 
  Country: None (occurrence: None)
  Receive Date: 20111018
  Receipt Date: 20101019
  Transmission Date: 20120403
  Serious: No
  Sender: FDA-Public Use
  Company Number: US-ASTRAZENECA-2010SE49405

PATIENT
  Sex: Female

DRUGS (1)
  1. SYMBICORT [Suspect]
     Indication: ASTHMA
     Dosage: ONE PUFF IN AM AND ONE PUFF IN PM
     Route: 055
     Dates: start: 20100201, end: 20100801

REACTIONS (5)
  - ASTHMA [None]
  - DRUG DOSE OMISSION [None]
  - DENTAL DISCOMFORT [None]
  - DRY THROAT [None]
  - NASOPHARYNGITIS [None]
